FAERS Safety Report 8807113 (Version 1)
Quarter: 2012Q4

REPORT INFORMATION
  Report Type: 
  Country: US (occurrence: US)
  Receive Date: 20120925
  Receipt Date: 20120925
  Transmission Date: 20130627
  Serious: Yes (Hospitalization, Other)
  Sender: FDA-Public Use
  Company Number: US-PFIZER INC-2012234686

PATIENT
  Age: 19 Year
  Sex: Female

DRUGS (3)
  1. SERTRALINE HCL [Suspect]
  2. AMITRIPTYLINE [Suspect]
     Dosage: 10 mg, 1-2 qhs
     Route: 048
  3. LAMOTRIGINE [Suspect]

REACTIONS (2)
  - Coeliac disease [Unknown]
  - Intestinal obstruction [Unknown]
